FAERS Safety Report 6087731-5 (Version None)
Quarter: 2009Q1

REPORT INFORMATION
  Report Type: 
  Country: None (occurrence: None)
  Receive Date: 20090223
  Receipt Date: 20090210
  Transmission Date: 20090719
  Serious: Yes (Other)
  Sender: FDA-Public Use
  Company Number: US-ABBOTT-09P-163-0502969-00

PATIENT
  Sex: Male
  Weight: 107.6 kg

DRUGS (13)
  1. DEPAKOTE ER [Suspect]
     Indication: DRUG EXPOSURE DURING PREGNANCY
     Route: 064
  2. PROZAC [Concomitant]
     Indication: DEPRESSION
     Dates: start: 20070101
  3. PROZAC [Concomitant]
     Indication: ATTENTION DEFICIT/HYPERACTIVITY DISORDER
  4. CLONIDINE [Concomitant]
     Indication: HYPERTENSION
  5. CLONIDINE [Concomitant]
     Indication: INSOMNIA
  6. ALBUTEROL [Concomitant]
     Indication: ASTHMA
     Route: 055
     Dates: start: 19990101
  7. ALBUTEROL [Concomitant]
     Indication: DYSPNOEA
  8. TOPAMAX [Concomitant]
     Indication: HEADACHE
     Dates: start: 20080101
  9. DIAZIDE [Concomitant]
     Indication: FLUID RETENTION
     Dosage: 37.5-25MG
     Dates: start: 20080101
  10. NASONEX [Concomitant]
     Indication: DRUG USE FOR UNKNOWN INDICATION
     Dates: start: 19990101
  11. SINGULAIR [Concomitant]
     Indication: DYSPNOEA
     Dates: start: 20040101
  12. NATROXEN [Concomitant]
     Indication: HEADACHE
     Dosage: 1 TABLET
  13. ALLERGY SHOTS [Concomitant]
     Indication: HYPERSENSITIVITY

REACTIONS (25)
  - AMNESIA [None]
  - ANTISOCIAL BEHAVIOUR [None]
  - ANXIETY [None]
  - ASTHMA [None]
  - ATTENTION DEFICIT/HYPERACTIVITY DISORDER [None]
  - BLOOD TRIGLYCERIDES INCREASED [None]
  - CONGENITAL MUSCULOSKELETAL ANOMALY [None]
  - DEPRESSION [None]
  - DRUG EXPOSURE DURING PREGNANCY [None]
  - DYSKINESIA [None]
  - EAR INFECTION [None]
  - EPISTAXIS [None]
  - FOETAL ALCOHOL SYNDROME [None]
  - FOOT FRACTURE [None]
  - HEADACHE [None]
  - HIGH DENSITY LIPOPROTEIN DECREASED [None]
  - HYPERTENSION [None]
  - HYPOKINESIA [None]
  - INFECTIOUS MONONUCLEOSIS [None]
  - LEARNING DISABILITY [None]
  - LOW DENSITY LIPOPROTEIN INCREASED [None]
  - MENTALLY LATE DEVELOPER [None]
  - RENAL DISORDER [None]
  - RHINITIS [None]
  - VICTIM OF SEXUAL ABUSE [None]
